FAERS Safety Report 8151562-2 (Version None)
Quarter: 2012Q1

REPORT INFORMATION
  Report Type: 
  Country: None (occurrence: None)
  Receive Date: 20120220
  Receipt Date: 20120206
  Transmission Date: 20120608
  Serious: Yes (Death, Other)
  Sender: FDA-Public Use
  Company Number: KR-ROCHE-1041330

PATIENT

DRUGS (4)
  1. TIROFIBAN HYDROCHLORIDE [Suspect]
     Indication: ISCHAEMIC STROKE
     Route: 013
  2. HEPARIN [Concomitant]
     Indication: ISCHAEMIC STROKE
  3. UROKINASE [Suspect]
     Indication: ISCHAEMIC STROKE
     Route: 013
  4. ALTEPLASE [Suspect]
     Indication: ISCHAEMIC STROKE
     Route: 042

REACTIONS (3)
  - ARTERIAL OCCLUSIVE DISEASE [None]
  - BRAIN HERNIATION [None]
  - BRAIN OEDEMA [None]
